FAERS Safety Report 15868038 (Version 2)
Quarter: 2019Q1

REPORT INFORMATION
  Report Type: Spontaneous
  Country: US (occurrence: US)
  Receive Date: 20190125
  Receipt Date: 20190131
  Transmission Date: 20190417
  Serious: No
  Sender: FDA-Public Use
  Company Number: US-SHIRE-US201902065

PATIENT
  Sex: Female
  Weight: 76.2 kg

DRUGS (2)
  1. VYVANSE [Suspect]
     Active Substance: LISDEXAMFETAMINE DIMESYLATE
     Dosage: HALF 50 MG CAPSULE , 2X/DAY:BID
     Route: 048
     Dates: start: 201806
  2. VYVANSE [Suspect]
     Active Substance: LISDEXAMFETAMINE DIMESYLATE
     Indication: ATTENTION DEFICIT/HYPERACTIVITY DISORDER
     Dosage: 50 MILLIGRAM, 1X/DAY:QD
     Route: 048
     Dates: end: 201806

REACTIONS (6)
  - Therapeutic response shortened [Recovered/Resolved]
  - Off label use [Not Recovered/Not Resolved]
  - Exposure during pregnancy [Recovered/Resolved]
  - Palpitations [Recovered/Resolved]
  - Premature baby [Recovered/Resolved]
  - Product physical issue [Unknown]

NARRATIVE: CASE EVENT DATE: 2017
